FAERS Safety Report 9103503 (Version 3)
Quarter: 2014Q1

REPORT INFORMATION
  Report Type: Spontaneous
  Country: US (occurrence: US)
  Receive Date: 20130219
  Receipt Date: 20140203
  Transmission Date: 20141002
  Serious: Yes (Hospitalization, Other)
  Sender: FDA-Public Use
  Company Number: US-009507513-1302USA006721

PATIENT
  Sex: Female
  Weight: 77.98 kg

DRUGS (2)
  1. NUVARING [Suspect]
     Indication: MENORRHAGIA
     Dosage: UNK
     Route: 067
     Dates: start: 20120120, end: 201206
  2. TENORMIN [Concomitant]
     Indication: HYPERTENSION
     Dosage: UNK
     Route: 048
     Dates: start: 20110628

REACTIONS (7)
  - Pulmonary embolism [Unknown]
  - Off label use [Unknown]
  - Granuloma [Unknown]
  - Urinary tract infection [Unknown]
  - Pain in extremity [Unknown]
  - Thrombosis [Unknown]
  - Dyspnoea [Unknown]
